FAERS Safety Report 8774231 (Version 1)
Quarter: 2012Q4

REPORT INFORMATION
  Report Type: 
  Country: IS (occurrence: IS)
  Receive Date: 20120907
  Receipt Date: 20120907
  Transmission Date: 20130627
  Serious: Yes (Hospitalization, Other)
  Sender: FDA-Public Use
  Company Number: IS-PFIZER INC-2012215297

PATIENT
  Age: 72 Year
  Sex: Female

DRUGS (3)
  1. ATORVASTATIN CALCIUM [Suspect]
     Indication: LIPIDS INCREASED
     Dosage: UNK
  2. METOPROLOL [Concomitant]
     Dosage: UNK
  3. ASPIRIN [Concomitant]
     Dosage: UNK

REACTIONS (2)
  - Hepatic enzyme increased [Recovered/Resolved]
  - Jaundice [Unknown]
